FAERS Safety Report 8847908 (Version 1)
Quarter: 2012Q4

REPORT INFORMATION
  Report Type: 
  Country: FR (occurrence: FR)
  Receive Date: 20121018
  Receipt Date: 20121018
  Transmission Date: 20130627
  Serious: Yes (Hospitalization)
  Sender: FDA-Public Use
  Company Number: FR-PFIZER INC-2012252584

PATIENT
  Age: 54 Year
  Sex: Female

DRUGS (4)
  1. TRIFLUCAN [Suspect]
     Dosage: 50 mg, 1x/day
     Route: 048
     Dates: start: 20120804, end: 20120808
  2. PRISTINAMYCIN [Suspect]
     Dosage: 1 g, 3x/day
     Route: 048
     Dates: start: 20120804, end: 20120808
  3. APRANAX [Suspect]
     Dosage: 550 mg, 2x/day
     Route: 048
     Dates: start: 20120804, end: 20120808
  4. BIRODOGYL [Suspect]
     Dosage: 2 tablets per day
     Route: 048
     Dates: start: 20120724, end: 20120808

REACTIONS (5)
  - Vascular purpura [Recovered/Resolved]
  - Self-medication [None]
  - Drug ineffective [None]
  - Leukocytoclastic vasculitis [None]
  - Human herpesvirus 6 infection [None]
